FAERS Safety Report 7648693-X (Version None)
Quarter: 2011Q3

REPORT INFORMATION
  Report Type: 
  Country: None (occurrence: None)
  Receive Date: 20110801
  Receipt Date: 20110721
  Transmission Date: 20111222
  Serious: Yes (Other)
  Sender: FDA-Public Use
  Company Number: PHHY2011IT65544

PATIENT
  Sex: Male

DRUGS (10)
  1. ENALAPRIL MALEATE [Concomitant]
  2. LASIX [Concomitant]
  3. PIPERACILLIN AND TAZOBACTAM [Concomitant]
  4. BACTRIM [Concomitant]
  5. VEPESID [Suspect]
     Indication: HODGKIN'S DISEASE
     Dosage: 270 MG,DAILY
     Route: 042
     Dates: start: 20100907, end: 20110622
  6. DEURSIL [Concomitant]
  7. DECADRON [Concomitant]
  8. OMEPRAZOLE [Concomitant]
  9. SANDIMMUNE [Suspect]
     Indication: HODGKIN'S DISEASE
     Dosage: 360 MG, DAILY
     Route: 048
     Dates: start: 20110618
  10. MYCOSTATIN [Concomitant]

REACTIONS (1)
  - BONE MARROW FAILURE [None]
